FAERS Safety Report 8252708-8 (Version None)
Quarter: 2012Q2

REPORT INFORMATION
  Report Type: 
  Country: None (occurrence: None)
  Receive Date: 20120402
  Receipt Date: 20110826
  Transmission Date: 20120825
  Serious: No
  Sender: FDA-Public Use
  Company Number: US-ABBOTT-11P-163-0849936-00

PATIENT
  Age: 72 Year
  Sex: Male
  Weight: 79.45 kg

DRUGS (1)
  1. ANDROGEL [Suspect]
     Indication: BLOOD TESTOSTERONE DECREASED
     Dosage: PACKETS
     Dates: start: 20050101

REACTIONS (7)
  - PAPULE [None]
  - HYPERSENSITIVITY [None]
  - DRY SKIN [None]
  - RASH [None]
  - PRURITUS [None]
  - RASH PAPULAR [None]
  - BLISTER [None]
